FAERS Safety Report 5768758-7 (Version None)
Quarter: 2008Q2

REPORT INFORMATION
  Report Type: 
  Country: None (occurrence: None)
  Receive Date: 20080610
  Receipt Date: 20080530
  Transmission Date: 20081010
  Serious: Yes (Hospitalization, Other)
  Sender: FDA-Public Use
  Company Number: 48882

PATIENT
  Age: 49 Year
  Sex: Male
  Weight: 73 kg

DRUGS (1)
  1. LEUCOVORIN CALCIUM [Suspect]
     Indication: COLON CANCER
     Dosage: 200 MG/M2 IV
     Route: 042
     Dates: start: 20060531, end: 20060913

REACTIONS (12)
  - ABSCESS [None]
  - BLOOD CHLORIDE DECREASED [None]
  - BLOOD GLUCOSE INCREASED [None]
  - BLOOD SODIUM DECREASED [None]
  - BLOOD UREA DECREASED [None]
  - CHILLS [None]
  - HAEMATOCRIT DECREASED [None]
  - INFECTION [None]
  - MUSCULOSKELETAL PAIN [None]
  - POLLAKIURIA [None]
  - PURPURA [None]
  - PYREXIA [None]
